FAERS Safety Report 5852021-X (Version None)
Quarter: 2008Q3

REPORT INFORMATION
  Report Type: 
  Country: None (occurrence: None)
  Receive Date: 20080820
  Receipt Date: 20080808
  Transmission Date: 20090109
  Serious: Yes (Other)
  Sender: FDA-Public Use
  Company Number: US-PFIZER INC-2008067440

PATIENT
  Sex: Male
  Weight: 88.5 kg

DRUGS (2)
  1. CHANTIX [Suspect]
     Indication: SMOKING CESSATION THERAPY
     Dates: start: 20080701, end: 20080804
  2. PAXIL [Concomitant]
     Indication: DEPRESSION

REACTIONS (2)
  - FATIGUE [None]
  - ILL-DEFINED DISORDER [None]
